FAERS Safety Report 13381895 (Version 2)
Quarter: 2017Q2

REPORT INFORMATION
  Report Type: Spontaneous
  Country: CN (occurrence: CN)
  Receive Date: 20170327
  Receipt Date: 20170406
  Transmission Date: 20170830
  Serious: Yes (Hospitalization, Other)
  Sender: FDA-Public Use
  Company Number: PHHY2017CN043901

PATIENT
  Age: 90 Year
  Sex: Male

DRUGS (5)
  1. BETALOC [Concomitant]
     Active Substance: METOPROLOL TARTRATE
     Indication: PRODUCT USED FOR UNKNOWN INDICATION
     Route: 065
  2. FLUVASTATIN [Suspect]
     Active Substance: FLUVASTATIN SODIUM
     Dosage: 40 MG, QD
     Route: 048
  3. ASPIRIN. [Concomitant]
     Active Substance: ASPIRIN
     Indication: PRODUCT USED FOR UNKNOWN INDICATION
     Dosage: 0.1 OT, QD
     Route: 065
  4. ISOSORBIDE MONONITRATE. [Concomitant]
     Active Substance: ISOSORBIDE MONONITRATE
     Indication: PRODUCT USED FOR UNKNOWN INDICATION
     Dosage: 40 MG, QD
     Route: 048
  5. FLUVASTATIN [Suspect]
     Active Substance: FLUVASTATIN SODIUM
     Indication: ACUTE MYOCARDIAL INFARCTION
     Dosage: 40 MG, QN
     Route: 048
     Dates: start: 2005, end: 2016

REACTIONS (12)
  - Atrial flutter [Unknown]
  - Thrombosis [Recovered/Resolved]
  - Fall [Unknown]
  - Dizziness [Recovering/Resolving]
  - Sinus rhythm [Unknown]
  - Bundle branch block right [Unknown]
  - Atrioventricular block first degree [Unknown]
  - Aortic valve calcification [Unknown]
  - Pulmonary mass [Unknown]
  - Left atrial enlargement [Unknown]
  - Syncope [Recovering/Resolving]
  - Aortic aneurysm [Unknown]

NARRATIVE: CASE EVENT DATE: 20160522
